FAERS Safety Report 15844669 (Version 1)
Quarter: 2019Q1

REPORT INFORMATION
  Report Type: Spontaneous
  Country: US (occurrence: US)
  Receive Date: 20190118
  Receipt Date: 20190118
  Transmission Date: 20190417
  Serious: Yes (Other)
  Sender: FDA-Public Use
  Company Number: US-MAYNE PHARMA-2019MYN000004

PATIENT

DRUGS (1)
  1. TAMOXIFEN CITRATE. [Suspect]
     Active Substance: TAMOXIFEN CITRATE
     Indication: PRODUCT USED FOR UNKNOWN INDICATION

REACTIONS (9)
  - Disease progression [Unknown]
  - Bone marrow failure [Unknown]
  - Neutropenia [Unknown]
  - Diarrhoea [Unknown]
  - Rectal discharge [Unknown]
  - Fatigue [Unknown]
  - Urinary tract infection [Unknown]
  - Fluid replacement [Unknown]
  - Neuropathy peripheral [Unknown]
